FAERS Safety Report 6065846-5 (Version None)
Quarter: 2009Q1

REPORT INFORMATION
  Report Type: 
  Country: None (occurrence: None)
  Receive Date: 20090205
  Receipt Date: 20090130
  Transmission Date: 20090719
  Serious: Yes (Other)
  Sender: FDA-Public Use
  Company Number: BR-JNJFOC-20090107085

PATIENT
  Age: 20 Year
  Sex: Female

DRUGS (4)
  1. TOPAMAX [Suspect]
     Indication: BINGE EATING
     Route: 048
  2. AMANTADINE HCL [Concomitant]
     Indication: BINGE EATING
  3. INVEGA [Concomitant]
     Route: 048
  4. INVEGA [Concomitant]
     Indication: SCHIZOPHRENIA
     Route: 048

REACTIONS (3)
  - AUTOMATISM [None]
  - EXTRAPYRAMIDAL DISORDER [None]
  - THERAPEUTIC RESPONSE UNEXPECTED [None]
